FAERS Safety Report 25069913 (Version 1)
Quarter: 2025Q1

REPORT INFORMATION
  Report Type: Spontaneous
  Country: US (occurrence: US)
  Receive Date: 20250312
  Receipt Date: 20250312
  Transmission Date: 20250408
  Serious: Yes (Death)
  Sender: JOHNSON AND JOHNSON
  Company Number: US-JNJFOC-20250269012

PATIENT
  Age: 53 Year
  Sex: Male

DRUGS (2)
  1. TALVEY [Suspect]
     Active Substance: TALQUETAMAB-TGVS
     Indication: Plasma cell myeloma
     Route: 058
     Dates: start: 20241226
  2. TALVEY [Suspect]
     Active Substance: TALQUETAMAB-TGVS
     Dosage: MOST RECENT DOSE
     Route: 058

REACTIONS (1)
  - Death [Fatal]
